FAERS Safety Report 10015293 (Version 1)
Quarter: 2014Q1

REPORT INFORMATION
  Report Type: Spontaneous
  Country: US (occurrence: US)
  Receive Date: 20140317
  Receipt Date: 20140317
  Transmission Date: 20141002
  Serious: No
  Sender: FDA-Public Use
  Company Number: US-PFIZER INC-2014071987

PATIENT
  Sex: Male

DRUGS (6)
  1. VIAGRA [Suspect]
     Dosage: 100 MG, UNK
  2. TRENTAL [Concomitant]
     Dosage: UNK
  3. LOSARTAN [Concomitant]
     Indication: BLOOD PRESSURE
     Dosage: UNK
  4. CRESTOR [Concomitant]
     Dosage: UNK
  5. ZETIA [Concomitant]
     Dosage: UNK
  6. NEXIUM [Concomitant]
     Dosage: UNK

REACTIONS (2)
  - Chromatopsia [Unknown]
  - Vision blurred [Unknown]
